FAERS Safety Report 5542593-7 (Version None)
Quarter: 2007Q4

REPORT INFORMATION
  Report Type: 
  Country: None (occurrence: None)
  Receive Date: 20071206
  Receipt Date: 20071206
  Transmission Date: 20080405
  Serious: No
  Sender: FDA-Public Use
  Company Number: None

PATIENT
  Age: 11 Year
  Sex: Male
  Weight: 43.5453 kg

DRUGS (2)
  1. ZOLOFT [Suspect]
     Indication: AFFECTIVE DISORDER
     Dosage: 50MG DAILY  PO
     Route: 048
     Dates: start: 20070821, end: 20070918
  2. ZOLOFT [Suspect]
     Indication: PSYCHOTIC DISORDER
     Dosage: 50MG DAILY  PO
     Route: 048
     Dates: start: 20070821, end: 20070918

REACTIONS (2)
  - ANGER [None]
  - MOOD SWINGS [None]
